FAERS Safety Report 12777449 (Version 2)
Quarter: 2017Q3

REPORT INFORMATION
  Report Type: Spontaneous
  Country: US (occurrence: US)
  Receive Date: 20160924
  Receipt Date: 20170920
  Transmission Date: 20171127
  Serious: No
  Sender: FDA-Public Use
  Company Number: US-TEVA-604606USA

PATIENT
  Age: 91 Year
  Sex: Male

DRUGS (12)
  1. CARBAMAZEPINE. [Suspect]
     Active Substance: CARBAMAZEPINE
     Indication: PRODUCT USED FOR UNKNOWN INDICATION
     Dosage: USED ONE PILL
     Route: 065
     Dates: start: 20150715, end: 20150715
  2. BENICAR [Concomitant]
     Active Substance: OLMESARTAN MEDOXOMIL
     Indication: CARDIAC DISORDER
  3. CLINDAMYCIN. [Concomitant]
     Active Substance: CLINDAMYCIN
     Dosage: 300 MILLIGRAM DAILY; DENTIST EVERY 6 MONTHS
  4. XTANDI [Suspect]
     Active Substance: ENZALUTAMIDE
     Route: 065
     Dates: start: 20170105
  5. PANTOPRAZOLE [Concomitant]
     Active Substance: PANTOPRAZOLE
     Indication: ULCER
     Dosage: 1 HOUR BEFORE MEALS
  6. B COMPLEX FOLIC ACID PLUS VITAMINE C [Concomitant]
  7. VITAMIN B12 [Concomitant]
     Active Substance: CYANOCOBALAMIN
  8. COZAPAN [Concomitant]
     Indication: TINNITUS
     Dates: start: 20140320
  9. IRON [Concomitant]
     Active Substance: IRON
  10. FOLIC ACID. [Concomitant]
     Active Substance: FOLIC ACID
  11. XTANDI [Suspect]
     Active Substance: ENZALUTAMIDE
     Indication: PROSTATE CANCER METASTATIC
     Dosage: 160 MILLIGRAM DAILY;
     Route: 065
     Dates: start: 20150330
  12. POTASSIUM CHLORIDE. [Concomitant]
     Active Substance: POTASSIUM CHLORIDE
     Indication: CARDIAC DISORDER

REACTIONS (8)
  - Weight decreased [Recovering/Resolving]
  - Insomnia [Unknown]
  - Vertigo [Recovered/Resolved]
  - Amnesia [Not Recovered/Not Resolved]
  - Neuropathy peripheral [Not Recovered/Not Resolved]
  - Tinnitus [Recovered/Resolved]
  - Anxiety [Not Recovered/Not Resolved]
  - Dry mouth [Unknown]

NARRATIVE: CASE EVENT DATE: 20150302
